FAERS Safety Report 5259357-4 (Version None)
Quarter: 2007Q1

REPORT INFORMATION
  Report Type: 
  Country: None (occurrence: None)
  Receive Date: 20070305
  Receipt Date: 20070219
  Transmission Date: 20070707
  Serious: Yes (Life-Threatening, Hospitalization)
  Sender: FDA-Public Use
  Company Number: 310023M06FRA

PATIENT
  Age: 36 Year
  Sex: Female
  Weight: 100 kg

DRUGS (2)
  1. GONAL-F (FOLLITROPIN ALFA FOR INJECTIN) ) (FOLLITROPIN ALFA) [Suspect]
     Indication: INFERTILITY
     Dates: start: 20061027
  2. GONADORELIN INJ [Suspect]
     Indication: INFERTILITY
     Dosage: 0.05 MG, SUBCUTANEOUS
     Route: 058
     Dates: start: 20061004

REACTIONS (5)
  - HAEMOLYTIC ANAEMIA [None]
  - OVARIAN HYPERSTIMULATION SYNDROME [None]
  - RENAL FAILURE ACUTE [None]
  - THROMBOCYTOPENIA [None]
  - THROMBOTIC MICROANGIOPATHY [None]
